FAERS Safety Report 8940312 (Version 1)
Quarter: 2012Q4

REPORT INFORMATION
  Report Type: 
  Country: US (occurrence: US)
  Receive Date: 20121130
  Receipt Date: 20121130
  Transmission Date: 20130627
  Serious: Yes (Death)
  Sender: FDA-Public Use
  Company Number: US-ASTELLAS-2012US011718

PATIENT
  Sex: Male

DRUGS (1)
  1. TARCEVA [Suspect]
     Indication: BRAIN NEOPLASM MALIGNANT
     Dosage: UNK
     Route: 048
     Dates: start: 200601

REACTIONS (2)
  - Off label use [Unknown]
  - Malignant neoplasm progression [Fatal]
